FAERS Safety Report 10557398 (Version 1)
Quarter: 2014Q4

REPORT INFORMATION
  Report Type: Spontaneous
  Country: US (occurrence: None)
  Receive Date: 20141029
  Receipt Date: 20141029
  Transmission Date: 20150529
  Serious: Yes (Other)
  Sender: FDA-Public Use
  Company Number: 2014SA146129

PATIENT
  Age: 36 Year
  Sex: Female

DRUGS (3)
  1. UNISOM SLEEPTABS [Suspect]
     Active Substance: DOXYLAMINE SUCCINATE
     Indication: NAUSEA
  2. LOVENOX [Suspect]
     Active Substance: ENOXAPARIN SODIUM
     Indication: COAGULOPATHY
     Dates: start: 201310
  3. ANTIHYPERTENSIVES [Concomitant]
     Active Substance: UNSPECIFIED INGREDIENT

REACTIONS (9)
  - Gestational hypertension [None]
  - Maternal exposure during pregnancy [None]
  - Nausea [None]
  - Contusion [None]
  - Injection site bruising [None]
  - Pain [None]
  - Gestational diabetes [None]
  - Gallbladder disorder [None]
  - Caesarean section [None]
